FAERS Safety Report 9182598 (Version 1)
Quarter: 2013Q1

REPORT INFORMATION
  Report Type: Spontaneous
  Country: US (occurrence: US)
  Receive Date: 20130322
  Receipt Date: 20130322
  Transmission Date: 20140127
  Serious: No
  Sender: FDA-Public Use
  Company Number: US-BRISTOL-MYERS SQUIBB COMPANY-16841033

PATIENT
  Age: 53 Year
  Sex: Female

DRUGS (4)
  1. ERBITUX [Suspect]
     Dosage: NO OF TREATMENTS: 2
  2. CAMPTOSAR [Concomitant]
  3. XELODA [Concomitant]
  4. LISINOPRIL [Concomitant]

REACTIONS (1)
  - Rash [Unknown]
